FAERS Safety Report 25469630 (Version 2)
Quarter: 2025Q2

REPORT INFORMATION
  Report Type: Report from Study
  Country: BE (occurrence: BE)
  Receive Date: 20250623
  Receipt Date: 20250630
  Transmission Date: 20250716
  Serious: Yes (Death)
  Sender: AMGEN
  Company Number: BE-BEH-2025209715

PATIENT
  Age: 82 Year
  Sex: Female

DRUGS (5)
  1. AVACOPAN [Suspect]
     Active Substance: AVACOPAN
     Indication: Anti-neutrophil cytoplasmic antibody positive vasculitis
     Dosage: 30 MG, BID
     Route: 065
     Dates: start: 20250520, end: 20250609
  2. VFEND [Concomitant]
     Active Substance: VORICONAZOLE
     Indication: Aspergillus infection
     Route: 040
     Dates: start: 20250526, end: 20250605
  3. PIPERACILLIN SODIUM\TAZOBACTAM SODIUM [Concomitant]
     Active Substance: PIPERACILLIN SODIUM\TAZOBACTAM SODIUM
     Indication: Pseudomonas infection
     Route: 040
     Dates: start: 20250514, end: 20250525
  4. MEROPENEM [Concomitant]
     Active Substance: MEROPENEM
     Indication: Pseudomonas infection
     Route: 040
     Dates: start: 20250525, end: 20250605
  5. GANCICLOVIR [Concomitant]
     Active Substance: GANCICLOVIR
     Indication: Cytomegalovirus infection
     Route: 040
     Dates: start: 20250526, end: 20250601

REACTIONS (2)
  - Respiratory failure [Fatal]
  - Infection [Fatal]

NARRATIVE: CASE EVENT DATE: 20250101
